FAERS Safety Report 17483752 (Version 2)
Quarter: 2020Q2

REPORT INFORMATION
  Report Type: Spontaneous
  Country: US (occurrence: US)
  Receive Date: 20200302
  Receipt Date: 20200518
  Transmission Date: 20200713
  Serious: Yes (Hospitalization, Other)
  Sender: FDA-Public Use
  Company Number: US-ROCHE-2556603

PATIENT
  Sex: Female

DRUGS (13)
  1. PANTOPRAZOLE SODIUM. [Concomitant]
     Active Substance: PANTOPRAZOLE SODIUM
  2. FAMOTIDINE. [Concomitant]
     Active Substance: FAMOTIDINE
  3. SIMVASTATIN. [Concomitant]
     Active Substance: SIMVASTATIN
  4. MIRALAX [Concomitant]
     Active Substance: POLYETHYLENE GLYCOL 3350
  5. SODIUM CHLORIDE. [Concomitant]
     Active Substance: SODIUM CHLORIDE
  6. VENLAFAXINE HCL [Concomitant]
     Active Substance: VENLAFAXINE HYDROCHLORIDE
  7. MEMANTINE HCL [Concomitant]
     Active Substance: MEMANTINE
  8. FERROUS SULPHATE [FERROUS SULFATE] [Concomitant]
     Active Substance: FERROUS SULFATE
  9. LEVOTHYROXINE SODIUM. [Concomitant]
     Active Substance: LEVOTHYROXINE SODIUM
  10. ESBRIET [Suspect]
     Active Substance: PIRFENIDONE
     Indication: CHRONIC OBSTRUCTIVE PULMONARY DISEASE
     Dosage: 3 CAPSULES BY MOUTH THREE TIMES PER DAY WITH MEALS
     Route: 048
     Dates: start: 20190723
  11. MONTELUKAST SODIUM. [Concomitant]
     Active Substance: MONTELUKAST SODIUM
  12. TYLENOL [Concomitant]
     Active Substance: ACETAMINOPHEN
  13. SILDENAFIL CITRATE. [Concomitant]
     Active Substance: SILDENAFIL CITRATE

REACTIONS (5)
  - Off label use [Unknown]
  - Product dose omission [Unknown]
  - Fall [Unknown]
  - Dyspnoea [Unknown]
  - Intentional product use issue [Unknown]
